FAERS Safety Report 24727277 (Version 4)
Quarter: 2025Q1

REPORT INFORMATION
  Report Type: Spontaneous
  Country: FR (occurrence: FR)
  Receive Date: 20241212
  Receipt Date: 20250207
  Transmission Date: 20250408
  Serious: Yes (Other)
  Sender: TEVA
  Company Number: FR-TEVA-VS-3273884

PATIENT
  Age: 56 Year
  Sex: Female

DRUGS (2)
  1. TAMOXIFEN [Suspect]
     Active Substance: TAMOXIFEN
     Indication: Breast cancer
     Dosage: ONE TABLET IN THE MORNING AND ONE TABLET IN THE EVENING, TEVA
     Route: 065
     Dates: start: 20210310
  2. ESCITALOPRAM [Concomitant]
     Active Substance: ESCITALOPRAM OXALATE
     Indication: Product used for unknown indication
     Route: 065
     Dates: end: 202411

REACTIONS (13)
  - Long QT syndrome [Not Recovered/Not Resolved]
  - Fasciitis [Unknown]
  - Memory impairment [Not Recovered/Not Resolved]
  - Osteoarthritis [Unknown]
  - Hypertension [Unknown]
  - Heart rate decreased [Not Recovered/Not Resolved]
  - Heart rate increased [Not Recovered/Not Resolved]
  - Vomiting [Unknown]
  - Fatigue [Not Recovered/Not Resolved]
  - Arthralgia [Not Recovered/Not Resolved]
  - Myalgia [Not Recovered/Not Resolved]
  - Emotional distress [Unknown]
  - Influenza [Unknown]

NARRATIVE: CASE EVENT DATE: 20241101
